FAERS Safety Report 16323813 (Version 1)
Quarter: 2019Q2

REPORT INFORMATION
  Report Type: Report from Study
  Country: TR (occurrence: TR)
  Receive Date: 20190517
  Receipt Date: 20190517
  Transmission Date: 20190711
  Serious: Yes (Death, Other)
  Sender: FDA-Public Use
  Company Number: PHHY2019TR110294

PATIENT
  Age: 64 Year
  Sex: Female
  Weight: 90 kg

DRUGS (2)
  1. MIDOSTAURIN [Suspect]
     Active Substance: MIDOSTAURIN
     Indication: SYSTEMIC MASTOCYTOSIS
     Dosage: 50 OT, QD
     Route: 048
     Dates: start: 20190501
  2. MIDOSTAURIN [Suspect]
     Active Substance: MIDOSTAURIN
     Indication: CHRONIC MYELOID LEUKAEMIA
     Dosage: 50 OT, QD
     Route: 048
     Dates: start: 20170407

REACTIONS (5)
  - Chronic myelomonocytic leukaemia [Unknown]
  - Pulmonary alveolar haemorrhage [Unknown]
  - Disease recurrence [Unknown]
  - Death [Fatal]
  - Systemic mastocytosis [Unknown]

NARRATIVE: CASE EVENT DATE: 20190509
